FAERS Safety Report 21481010 (Version 1)
Quarter: 2022Q4

REPORT INFORMATION
  Report Type: Spontaneous
  Country: CN (occurrence: CN)
  Receive Date: 20221019
  Receipt Date: 20221019
  Transmission Date: 20230112
  Serious: Yes (Life-Threatening, Other)
  Sender: FDA-Public Use
  Company Number: CN-009507513-2210CHN004042

PATIENT
  Age: 87 Year
  Sex: Male
  Weight: 51 kg

DRUGS (4)
  1. CILASTATIN SODIUM\IMIPENEM [Suspect]
     Active Substance: CILASTATIN SODIUM\IMIPENEM
     Indication: Septic shock
     Dosage: 1 G, Q8H, INTRAVENOUS
     Route: 042
     Dates: start: 20220422, end: 20220423
  2. DOXOFYLLINE [Concomitant]
     Active Substance: DOXOFYLLINE
     Indication: Tracheal obstruction
     Dosage: 0.2 G, Q12H, INTRAVENOUS
     Route: 042
     Dates: start: 20220422, end: 20220504
  3. SODIUM CHLORIDE [Concomitant]
     Active Substance: SODIUM CHLORIDE
     Indication: Medication dilution
     Dosage: 50 ML, Q8H, INTRAVENOUS
     Route: 042
     Dates: start: 20220422, end: 20220423
  4. SODIUM CHLORIDE [Concomitant]
     Active Substance: SODIUM CHLORIDE
     Dosage: 50 ML, Q12H, INTRAVENOUS
     Route: 042
     Dates: start: 20220422, end: 20220504

REACTIONS (3)
  - Seizure [Recovered/Resolved]
  - Body temperature increased [Unknown]
  - Blood pressure decreased [Recovered/Resolved]

NARRATIVE: CASE EVENT DATE: 20220423
